FAERS Safety Report 8216694-9 (Version None)
Quarter: 2012Q1

REPORT INFORMATION
  Report Type: 
  Country: None (occurrence: None)
  Receive Date: 20120316
  Receipt Date: 20120305
  Transmission Date: 20120608
  Serious: Yes (Hospitalization, Other)
  Sender: FDA-Public Use
  Company Number: DE-CELGENEUS-062-21880-11122230

PATIENT
  Age: 58 Year
  Sex: Female

DRUGS (17)
  1. AMITRIPTYLINE HCL [Concomitant]
     Indication: DEPRESSION
     Dosage: 50 MILLIGRAM
     Route: 065
     Dates: start: 20111101
  2. MIRTAZAPINE [Concomitant]
     Indication: DEPRESSION
     Dosage: 45 MILLIGRAM
     Route: 065
     Dates: start: 20110501
  3. VENLAFAXINE HYDROCHLORIDE [Concomitant]
     Indication: DEPRESSION
     Dosage: 150-75
     Route: 065
     Dates: start: 20111101
  4. ZOLPIDEM [Concomitant]
  5. ZOLPIDEM [Concomitant]
     Indication: DEPRESSION
     Dosage: 1 DOSAGE FORMS
     Route: 065
     Dates: start: 20111101
  6. REVLIMID [Suspect]
     Dosage: 25 MILLIGRAM
     Route: 048
     Dates: start: 20110819
  7. REVLIMID [Suspect]
     Route: 048
     Dates: start: 20111212
  8. FENTANYL-100 [Concomitant]
     Route: 065
  9. PANTOPRAZOLE [Concomitant]
     Indication: GASTRITIS
     Dosage: 40 MILLIGRAM
     Route: 065
     Dates: start: 20111101
  10. NOVALGIN [Concomitant]
     Dosage: 160 DROPS
     Route: 065
     Dates: start: 20101101, end: 20120101
  11. LORAZEPAM [Concomitant]
     Indication: DEPRESSION
     Dosage: 1.5
     Route: 065
     Dates: start: 20111101
  12. PROTHIPENDYL [Concomitant]
  13. LEVOTHYROXINE SODIUM [Concomitant]
     Indication: HYPOTHYROIDISM
     Dosage: 100 MICROGRAM
     Route: 065
     Dates: start: 19980101
  14. PROTHIPENDYL [Concomitant]
     Indication: DEPRESSION
     Dosage: 80 MILLIGRAM
     Route: 065
     Dates: start: 20111101
  15. ASPIRIN [Concomitant]
     Indication: PROPHYLAXIS
     Dosage: 100 MILLIGRAM
     Route: 065
     Dates: start: 20110801
  16. DICLOFENAC SODIUM [Concomitant]
     Route: 065
     Dates: start: 20100601
  17. MULTI-VITAMINS [Concomitant]
     Dosage: 60 DROPS
     Route: 065
     Dates: start: 20111101, end: 20120101

REACTIONS (1)
  - DEPRESSED MOOD [None]
